FAERS Safety Report 21672358 (Version 2)
Quarter: 2023Q1

REPORT INFORMATION
  Report Type: Report from Study
  Country: US (occurrence: US)
  Receive Date: 20221202
  Receipt Date: 20230104
  Transmission Date: 20230417
  Serious: No
  Sender: FDA-Public Use
  Company Number: US-ABBVIE-4212005

PATIENT
  Age: 14 Year
  Sex: Male

DRUGS (2)
  1. HUMIRA [Suspect]
     Active Substance: ADALIMUMAB
     Indication: Juvenile idiopathic arthritis
     Dosage: THE EVENT SWOLLEN ANKLE AND TURNS OUT IT WAS BUG BITES INSTEAD OF JUVENILE IDIOPATHIC ARTHRITIS S...
     Route: 058
  2. HUMIRA [Suspect]
     Active Substance: ADALIMUMAB
     Dosage: FORM STRENGTH: 40 MG
     Route: 058

REACTIONS (9)
  - Injection site haemorrhage [Unknown]
  - Wrong technique in product usage process [Unknown]
  - Arthropod bite [Recovered/Resolved]
  - Haemorrhage [Unknown]
  - Incorrect dose administered [Unknown]
  - Arthralgia [Not Recovered/Not Resolved]
  - Erythema [Not Recovered/Not Resolved]
  - Still^s disease [Not Recovered/Not Resolved]
  - Wound complication [Recovered/Resolved]

NARRATIVE: CASE EVENT DATE: 20221101
